FAERS Safety Report 20779304 (Version 1)
Quarter: 2022Q2

REPORT INFORMATION
  Report Type: Spontaneous
  Country: US (occurrence: US)
  Receive Date: 20220503
  Receipt Date: 20220503
  Transmission Date: 20220720
  Serious: No
  Sender: FDA-Public Use
  Company Number: US-PFIZER INC-202101724876

PATIENT
  Age: 78 Year
  Sex: Female
  Weight: 54.43 kg

DRUGS (1)
  1. EUCRISA [Suspect]
     Active Substance: CRISABOROLE
     Indication: Pruritus
     Dosage: THREE TO FOUR TIMES A DAY, DEPENDS ON THE WEATHER
     Dates: start: 2021

REACTIONS (3)
  - Therapeutic product effect decreased [Not Recovered/Not Resolved]
  - Off label use [Unknown]
  - Intentional product misuse [Unknown]

NARRATIVE: CASE EVENT DATE: 20210101
